FAERS Safety Report 4899450-9 (Version None)
Quarter: 2006Q1

REPORT INFORMATION
  Report Type: 
  Country: None (occurrence: None)
  Receive Date: 20060131
  Receipt Date: 20060116
  Transmission Date: 20060701
  Serious: Yes (Hospitalization)
  Sender: FDA-Public Use
  Company Number: DSA_27654_2006

PATIENT
  Age: 36 Year
  Sex: Female

DRUGS (3)
  1. LORAZEPAM [Suspect]
     Dosage: 1 MG ONCE PO
     Route: 048
     Dates: start: 20060114, end: 20060114
  2. CHLORPROTHIXENE [Suspect]
     Dosage: 150 MG ONCE PO
     Route: 048
     Dates: start: 20060114, end: 20060114
  3. DIAZEPAM [Suspect]
     Dosage: DF ONCE PO
     Route: 048
     Dates: start: 20060114, end: 20060114

REACTIONS (5)
  - GAIT DISTURBANCE [None]
  - MULTIPLE DRUG OVERDOSE INTENTIONAL [None]
  - MYDRIASIS [None]
  - SOMNOLENCE [None]
  - SUICIDE ATTEMPT [None]
